FAERS Safety Report 17285990 (Version 1)
Quarter: 2020Q1

REPORT INFORMATION
  Report Type: Spontaneous
  Country: US (occurrence: US)
  Receive Date: 20200118
  Receipt Date: 20200118
  Transmission Date: 20200409
  Serious: No
  Sender: FDA-Public Use
  Company Number: US-BIOGEN-2020BI00828114

PATIENT
  Sex: Female

DRUGS (2)
  1. TECFIDERA [Suspect]
     Active Substance: DIMETHYL FUMARATE
     Indication: MULTIPLE SCLEROSIS
     Dosage: TAKE 1 CAPSULE BY MOUTH TWICE A DAY
     Route: 048
  2. NEXPLANON [Concomitant]
     Active Substance: ETONOGESTREL
     Route: 065

REACTIONS (3)
  - Hypoaesthesia [Unknown]
  - Motor dysfunction [Unknown]
  - Hemianaesthesia [Unknown]
